FAERS Safety Report 6713839-4 (Version None)
Quarter: 2010Q2

REPORT INFORMATION
  Report Type: 
  Country: None (occurrence: None)
  Receive Date: 20100504
  Receipt Date: 20100428
  Transmission Date: 20101027
  Serious: Yes (Hospitalization)
  Sender: FDA-Public Use
  Company Number: 2010SP024506

PATIENT
  Age: 57 Year

DRUGS (2)
  1. MIRTAZAPINE [Suspect]
     Indication: DRUG USE FOR UNKNOWN INDICATION
     Dosage: 15 MG;QD; PO
     Route: 048
  2. MEILAZ (CON.) [Concomitant]

REACTIONS (4)
  - ALTERED STATE OF CONSCIOUSNESS [None]
  - ANXIETY [None]
  - HYPOCHONDRIASIS [None]
  - INSOMNIA [None]
